FAERS Safety Report 24739590 (Version 2)
Quarter: 2025Q1

REPORT INFORMATION
  Report Type: Spontaneous
  Country: US (occurrence: US)
  Receive Date: 20241216
  Receipt Date: 20250320
  Transmission Date: 20250408
  Serious: No
  Sender: SANOFI AVENTIS
  Company Number: US-SA-2024SA369868

PATIENT
  Age: 48 Year
  Sex: Female

DRUGS (1)
  1. DUPIXENT [Suspect]
     Active Substance: DUPILUMAB
     Indication: Asthma
     Dosage: 200 MG, QOW
     Route: 058
     Dates: start: 202307

REACTIONS (5)
  - Nausea [Unknown]
  - Pyrexia [Unknown]
  - Dizziness [Unknown]
  - Injection site inflammation [Unknown]
  - Asthma [Unknown]

NARRATIVE: CASE EVENT DATE: 20241206
